FAERS Safety Report 16506662 (Version 1)
Quarter: 2019Q3

REPORT INFORMATION
  Report Type: Spontaneous
  Country: GB (occurrence: GB)
  Receive Date: 20190701
  Receipt Date: 20190701
  Transmission Date: 20191004
  Serious: Yes (Other)
  Sender: FDA-Public Use
  Company Number: GB-TEVA-2019-GB-1070921

PATIENT
  Age: 69 Year
  Sex: Female
  Weight: 62 kg

DRUGS (13)
  1. LEVOFLOXACIN. [Suspect]
     Active Substance: LEVOFLOXACIN
     Indication: LOWER RESPIRATORY TRACT INFECTION
     Dosage: 1000 MG
     Route: 048
     Dates: start: 20190424, end: 20190426
  2. RELVAR ELLIPTA [Concomitant]
     Active Substance: FLUTICASONE FUROATE\VILANTEROL TRIFENATATE
     Dosage: PUFF, 2 DF
     Dates: start: 20180927
  3. PEPPERMINT OIL [Concomitant]
     Active Substance: PEPPERMINT OIL
     Dosage: 3 DF
     Dates: start: 20190524
  4. SALBUTAMOL [Concomitant]
     Active Substance: ALBUTEROL
     Dosage: 3-4 TIMES/DAY, 1 DF
     Route: 055
     Dates: start: 20180406
  5. BRALTUS [Concomitant]
     Active Substance: TIOTROPIUM BROMIDE
     Dosage: INHALE THE CONTENTS OF ONE CAPSULE ONCE DAILY, 1 DF
     Dates: start: 20180927
  6. NYSTAN [Concomitant]
     Active Substance: NYSTATIN
     Dosage: AS DIRECTED
     Dates: start: 20190305
  7. FENOFIBRATE. [Concomitant]
     Active Substance: FENOFIBRATE
     Dosage: 3 DF
     Dates: start: 20180406
  8. PREDNISOLONE. [Concomitant]
     Active Substance: PREDNISOLONE
     Dosage: 8 DF FOR 5 DAYS
     Dates: start: 20180406
  9. LANSOPRAZOLE. [Concomitant]
     Active Substance: LANSOPRAZOLE
     Dosage: 2 DF
     Dates: start: 20190114
  10. MONTELUKAST [Concomitant]
     Active Substance: MONTELUKAST SODIUM
     Dosage: 1 DF, NIGHT
     Dates: start: 20181120
  11. KLIOVANCE [Concomitant]
     Active Substance: ESTRADIOL\NORETHINDRONE ACETATE
     Dosage: 1 DF
     Dates: start: 20180406
  12. MUCOGEL [Concomitant]
     Active Substance: ALUMINUM HYDROXIDE\MAGNESIUM HYDROXIDE
     Dosage: 2-4 5ML SPOONFULS 3 TIMES DAILY WHEN REQUIRED
     Dates: start: 20181120
  13. DOXYCYCLINE. [Concomitant]
     Active Substance: DOXYCYCLINE
     Dosage: TAKE TWO NOW THEN TAKE ONE DAILY
     Dates: start: 20190429, end: 20190506

REACTIONS (2)
  - Pain in extremity [Not Recovered/Not Resolved]
  - Tendon pain [Not Recovered/Not Resolved]

NARRATIVE: CASE EVENT DATE: 20190424
